FAERS Safety Report 9195254 (Version 1)
Quarter: 2013Q1

REPORT INFORMATION
  Report Type: Spontaneous
  Country: US (occurrence: US)
  Receive Date: 20130328
  Receipt Date: 20130328
  Transmission Date: 20140127
  Serious: No
  Sender: FDA-Public Use
  Company Number: US-ALLERGAN-1211988US

PATIENT
  Age: 60 Year
  Sex: Female

DRUGS (1)
  1. LATISSE 0.03% [Suspect]
     Indication: GROWTH OF EYELASHES
     Dosage: 8 GTT, QHS
     Route: 061
     Dates: start: 2010

REACTIONS (13)
  - Eyelash discolouration [Unknown]
  - Pigmentation disorder [Unknown]
  - Pigmentation disorder [Unknown]
  - Wrong technique in drug usage process [Unknown]
  - Drug administered at inappropriate site [Unknown]
  - Expired drug administered [Unknown]
  - Incorrect dose administered [Unknown]
  - Trichorrhexis [Unknown]
  - Blepharal pigmentation [Unknown]
  - Madarosis [Unknown]
  - Trichorrhexis [Unknown]
  - Skin discolouration [Recovered/Resolved]
  - Drug ineffective [Unknown]
